FAERS Safety Report 22195250 (Version 1)
Quarter: 2023Q2

REPORT INFORMATION
  Report Type: Spontaneous
  Country: US (occurrence: US)
  Receive Date: 20230411
  Receipt Date: 20230411
  Transmission Date: 20230721
  Serious: No
  Sender: FDA-Public Use
  Company Number: US-TEVA-2023-US-2872199

PATIENT
  Age: 48 Year
  Sex: Female

DRUGS (1)
  1. ALPRAZOLAM [Suspect]
     Active Substance: ALPRAZOLAM
     Indication: Anxiety
     Route: 065

REACTIONS (7)
  - Feeling abnormal [Unknown]
  - Wrong technique in product usage process [Unknown]
  - Malaise [Unknown]
  - Adverse event [Unknown]
  - Drug ineffective [Unknown]
  - Product physical issue [Unknown]
  - Manufacturing materials issue [Unknown]
